FAERS Safety Report 23808087 (Version 5)
Quarter: 2024Q4

REPORT INFORMATION
  Report Type: Spontaneous
  Country: FR (occurrence: FR)
  Receive Date: 20240502
  Receipt Date: 20241021
  Transmission Date: 20250114
  Serious: Yes (Death, Hospitalization)
  Sender: PFIZER
  Company Number: FR-ETHYPHARM-2024001030

PATIENT
  Age: 72 Year
  Sex: Male
  Weight: 47 kg

DRUGS (16)
  1. PEMETREXED [Suspect]
     Active Substance: PEMETREXED
     Indication: Non-small cell lung cancer metastatic
     Dosage: 755 MG, 1X/DAY
     Route: 042
     Dates: start: 20240322, end: 20240322
  2. CARBOPLATIN [Suspect]
     Active Substance: CARBOPLATIN
     Indication: Non-small cell lung cancer metastatic
     Dosage: 650 MG, 1X/DAY
     Route: 042
     Dates: start: 20240322, end: 20240322
  3. DOMVANALIMAB [Suspect]
     Active Substance: DOMVANALIMAB
     Indication: Non-small cell lung cancer metastatic
     Dosage: 1200 MG, 1X/DAY
     Route: 042
     Dates: start: 20240322, end: 20240322
  4. ZIMBERELIMAB [Suspect]
     Active Substance: ZIMBERELIMAB
     Indication: Non-small cell lung cancer metastatic
     Dosage: 360 MG, 1X/DAY
     Route: 042
     Dates: start: 20240322, end: 20240322
  5. SKENAN [Suspect]
     Active Substance: MORPHINE SULFATE
     Indication: Tumour pain
     Dosage: UNK
     Route: 048
     Dates: start: 20240312
  6. MORPHINE SULFATE [Suspect]
     Active Substance: MORPHINE SULFATE
     Indication: Tumour pain
     Dosage: UNK
     Dates: start: 20240312
  7. PYRIDOSTIGMINE [Concomitant]
     Active Substance: PYRIDOSTIGMINE
     Dosage: UNK
     Dates: start: 20240312
  8. CYANOCOBALAMIN [Concomitant]
     Active Substance: CYANOCOBALAMIN
     Dosage: UNK
     Dates: start: 20240313
  9. NEULASTA [Concomitant]
     Active Substance: PEGFILGRASTIM
     Dosage: UNK
     Dates: start: 20240325
  10. KYTRIL [Concomitant]
     Active Substance: GRANISETRON HYDROCHLORIDE
     Dosage: UNK
     Dates: start: 20240322
  11. METOPIMAZINE [Concomitant]
     Active Substance: METOPIMAZINE
     Dosage: UNK
     Dates: start: 20240312
  12. EMEND [Concomitant]
     Active Substance: APREPITANT
     Dosage: UNK
     Dates: start: 20240322
  13. POLYETHYLENE GLYCOLS [Concomitant]
     Active Substance: POLYETHYLENE GLYCOLS
     Dosage: UNK
     Dates: start: 20240312
  14. FOLIC ACID [Concomitant]
     Active Substance: FOLIC ACID
     Dosage: UNK
     Dates: start: 20240313
  15. METHYLPREDNISOLONE [Concomitant]
     Active Substance: METHYLPREDNISOLONE
     Dosage: UNK
     Dates: start: 20240323
  16. ACETAMINOPHEN [Concomitant]
     Active Substance: ACETAMINOPHEN
     Dosage: UNK
     Dates: start: 20240312

REACTIONS (3)
  - General physical health deterioration [Fatal]
  - Overdose [Fatal]
  - Asthenia [Fatal]

NARRATIVE: CASE EVENT DATE: 20240301
